FAERS Safety Report 21092799 (Version 2)
Quarter: 2022Q3

REPORT INFORMATION
  Report Type: Spontaneous
  Country: US (occurrence: US)
  Receive Date: 20220718
  Receipt Date: 20220725
  Transmission Date: 20221026
  Serious: No
  Sender: FDA-Public Use
  Company Number: US-NOVARTISTESTPH-NVSC2022US161738

PATIENT
  Age: 10 Year
  Sex: Male
  Weight: 54.43 kg

DRUGS (1)
  1. ILARIS [Suspect]
     Active Substance: CANAKINUMAB
     Indication: Adverse drug reaction
     Dosage: 150 MG, EVERY 8 WEEKS
     Route: 058
     Dates: start: 20220710, end: 20220710

REACTIONS (3)
  - Nausea [Unknown]
  - Vomiting [Unknown]
  - Abdominal pain upper [Unknown]

NARRATIVE: CASE EVENT DATE: 20220711
